FAERS Safety Report 4399889-4 (Version None)
Quarter: 2004Q3

REPORT INFORMATION
  Report Type: 
  Country: None (occurrence: None)
  Receive Date: 20040716
  Receipt Date: 20040628
  Transmission Date: 20050211
  Serious: Yes (Other)
  Sender: FDA-Public Use
  Company Number: GB-JNJF0C-20040604502

PATIENT
  Age: 40 Year
  Sex: Male

DRUGS (2)
  1. RISPERDAL [Suspect]
     Indication: PSYCHOTIC DISORDER
     Dosage: 3 MG, 2 IN 1 DAY, ORAL
     Route: 048
     Dates: start: 20040524, end: 20040607
  2. STELAZINE [Concomitant]

REACTIONS (1)
  - LOSS OF CONSCIOUSNESS [None]
